FAERS Safety Report 8125618-4 (Version None)
Quarter: 2012Q1

REPORT INFORMATION
  Report Type: 
  Country: None (occurrence: None)
  Receive Date: 20120209
  Receipt Date: 20120203
  Transmission Date: 20120608
  Serious: Yes (Other)
  Sender: FDA-Public Use
  Company Number: US-PFIZER INC-2011147859

PATIENT
  Sex: Female

DRUGS (7)
  1. XANAX [Concomitant]
     Indication: ANXIETY
     Dosage: 1 MG, 1X/DAY
     Dates: start: 20010101
  2. SERTRALINE [Concomitant]
     Indication: DEPRESSION
     Dosage: UNK
     Dates: start: 20070101
  3. AMBIEN [Concomitant]
     Indication: INSOMNIA
     Dosage: UNK
     Dates: start: 20050101, end: 20100101
  4. MIRTAZAPINE [Concomitant]
     Indication: INSOMNIA
     Dosage: UNK
     Dates: start: 20070101, end: 20080101
  5. XANAX [Concomitant]
     Indication: INSOMNIA
  6. CHANTIX [Suspect]
     Indication: SMOKING CESSATION THERAPY
     Dosage: STARTER PACK AND 1 MG CONTINUING MONTH PACK
     Dates: start: 20070523, end: 20071001
  7. CELEBREX [Concomitant]
     Indication: PAIN
     Dosage: UNK
     Dates: start: 20060101, end: 20110101

REACTIONS (15)
  - AGGRESSION [None]
  - HALLUCINATION, AUDITORY [None]
  - SUICIDAL IDEATION [None]
  - AMNESIA [None]
  - MOOD SWINGS [None]
  - SOMNAMBULISM [None]
  - INSOMNIA [None]
  - MENTAL DISORDER [None]
  - IRRITABILITY [None]
  - ANGER [None]
  - DEPRESSION [None]
  - NIGHTMARE [None]
  - VISUAL IMPAIRMENT [None]
  - ANXIETY [None]
  - DIZZINESS [None]
